FAERS Safety Report 8425461-2 (Version None)
Quarter: 2012Q2

REPORT INFORMATION
  Report Type: 
  Country: None (occurrence: None)
  Receive Date: 20120611
  Receipt Date: 20120604
  Transmission Date: 20120825
  Serious: Yes (Hospitalization)
  Sender: FDA-Public Use
  Company Number: US-AMGEN-USASP2012034903

PATIENT
  Age: 53 Year
  Sex: Female

DRUGS (16)
  1. VALIUM [Concomitant]
  2. VITAMIN D [Concomitant]
     Dosage: 1 UNK, UNK
  3. POTASSIUM [Concomitant]
  4. METHOTREXATE [Concomitant]
     Indication: RHEUMATOID ARTHRITIS
     Dates: start: 20120201, end: 20120201
  5. HUMIRA [Concomitant]
  6. CALCIUM [Concomitant]
     Dates: end: 20120101
  7. LASIX [Concomitant]
  8. PLAQUENIL [Concomitant]
  9. PREDNISONE [Concomitant]
  10. ENBREL [Suspect]
  11. CALCIUM [Concomitant]
     Dosage: UNK
  12. PROLIA [Suspect]
     Indication: OSTEOPOROSIS POSTMENOPAUSAL
     Dosage: 60 MG, Q6MO
     Dates: start: 20110915
  13. GABAPENTIN [Concomitant]
  14. IBUPROFEN [Concomitant]
  15. ENBREL [Suspect]
     Indication: RHEUMATOID ARTHRITIS
     Dosage: UNK
  16. POTASSIUM [Concomitant]
     Dosage: UNK UNK, PER CHEMO REGIM

REACTIONS (10)
  - INFLUENZA LIKE ILLNESS [None]
  - MUSCULOSKELETAL CHEST PAIN [None]
  - OEDEMA PERIPHERAL [None]
  - CARDIOVASCULAR DISORDER [None]
  - SKIN REACTION [None]
  - ARTHRALGIA [None]
  - MOBILITY DECREASED [None]
  - PAIN [None]
  - JOINT SWELLING [None]
  - STAPHYLOCOCCAL INFECTION [None]
